FAERS Safety Report 16063995 (Version 1)
Quarter: 2019Q1

REPORT INFORMATION
  Report Type: Report from Study
  Country: US (occurrence: US)
  Receive Date: 20190312
  Receipt Date: 20190312
  Transmission Date: 20190418
  Serious: Yes (Other)
  Sender: FDA-Public Use
  Company Number: US-ALEXION-A201903508

PATIENT
  Age: 37 Year
  Sex: Female

DRUGS (3)
  1. SOLIRIS [Suspect]
     Active Substance: ECULIZUMAB
     Indication: C3 GLOMERULOPATHY
     Dosage: UNK
     Route: 042
     Dates: start: 2012
  2. SOLIRIS [Suspect]
     Active Substance: ECULIZUMAB
     Indication: OFF LABEL USE
     Dosage: 1200 MG, Q2W
     Route: 042
  3. MYCOPHENOLATE MOFETIL. [Concomitant]
     Active Substance: MYCOPHENOLATE MOFETIL
     Indication: C3 GLOMERULOPATHY
     Route: 065

REACTIONS (26)
  - Nervous system disorder [Unknown]
  - Haemoglobinuria [Unknown]
  - Seizure [Unknown]
  - Electrolyte imbalance [Unknown]
  - Haptoglobin increased [Unknown]
  - Disease recurrence [Unknown]
  - Off label use [Not Recovered/Not Resolved]
  - Anaemia [Unknown]
  - Retinopathy [Unknown]
  - Proteinuria [Unknown]
  - Blood urine present [Unknown]
  - Therapy non-responder [Unknown]
  - Blood lactate dehydrogenase increased [Unknown]
  - Pulmonary oedema [Unknown]
  - Blindness [Not Recovered/Not Resolved]
  - Blood creatinine increased [Unknown]
  - Loss of personal independence in daily activities [Unknown]
  - End stage renal disease [Unknown]
  - Renal impairment [Unknown]
  - Blood creatinine increased [Unknown]
  - Generalised oedema [Unknown]
  - Oedema peripheral [Unknown]
  - Impaired quality of life [Unknown]
  - Hypertension [Unknown]
  - Fatigue [Unknown]
  - Retinal disorder [Unknown]

NARRATIVE: CASE EVENT DATE: 2012
